FAERS Safety Report 9652417 (Version 4)
Quarter: 2013Q4

REPORT INFORMATION
  Report Type: Spontaneous
  Country: US (occurrence: US)
  Receive Date: 20131029
  Receipt Date: 20131226
  Transmission Date: 20140711
  Serious: Yes (Hospitalization, Other)
  Sender: FDA-Public Use
  Company Number: US-PFIZER INC-2013305052

PATIENT
  Age: 48 Year
  Sex: Female
  Weight: 55.33 kg

DRUGS (8)
  1. PRISTIQ [Suspect]
     Indication: MAJOR DEPRESSION
     Dosage: 50 MG, 2X/DAY
     Route: 048
     Dates: start: 20130909
  2. BACLOFEN [Interacting]
     Indication: BACK PAIN
     Dosage: UNK
     Dates: start: 201309, end: 2013
  3. BACLOFEN [Interacting]
     Indication: MUSCLE SPASMS
  4. NORCO [Concomitant]
     Dosage: 10/325 MG, 4X/DAY
  5. VISTARIL [Concomitant]
     Dosage: UNK
  6. ATIVAN [Concomitant]
     Dosage: 1 MG, UNK
  7. TRAZODONE [Concomitant]
     Dosage: UNK
  8. LYRICA [Concomitant]
     Indication: FIBROMYALGIA
     Dosage: 150 MG, 3X/DAY
     Route: 048
     Dates: start: 201006, end: 201307

REACTIONS (10)
  - Depression [Unknown]
  - Drug interaction [Unknown]
  - Malaise [Unknown]
  - Lethargy [Unknown]
  - Tremor [Unknown]
  - Hypoaesthesia [Unknown]
  - Gait disturbance [Unknown]
  - Epstein-Barr virus infection [Unknown]
  - Back pain [Unknown]
  - Muscle spasms [Unknown]
